FAERS Safety Report 8010510-6 (Version None)
Quarter: 2011Q4

REPORT INFORMATION
  Report Type: 
  Country: None (occurrence: None)
  Receive Date: 20111222
  Receipt Date: 20111212
  Transmission Date: 20120403
  Serious: Yes (Hospitalization)
  Sender: FDA-Public Use
  Company Number: 1139824

PATIENT
  Age: 34 Year
  Sex: Female

DRUGS (3)
  1. CARBOPLATIN [Suspect]
     Indication: BREAST CANCER
  2. DOCETAXEL [Concomitant]
  3. (TRASTUZUMAB) [Concomitant]

REACTIONS (3)
  - SUPRAPUBIC PAIN [None]
  - HAEMATURIA [None]
  - PUBIC PAIN [None]
